FAERS Safety Report 24845975 (Version 2)
Quarter: 2025Q3

REPORT INFORMATION
  Report Type: Spontaneous
  Country: US (occurrence: US)
  Receive Date: 20250115
  Receipt Date: 20250816
  Transmission Date: 20251021
  Serious: No
  Sender: ALEXION PHARMACEUTICALS
  Company Number: US-ASTRAZENECA-202501USA007322US

PATIENT
  Sex: Female
  Weight: 92.5 kg

DRUGS (2)
  1. CRESTOR [Suspect]
     Active Substance: ROSUVASTATIN CALCIUM
     Dosage: 10 MILLIGRAM, QD
     Dates: start: 20240223
  2. VYNDAMAX [Concomitant]
     Active Substance: TAFAMIDIS
     Dosage: 61 MILLIGRAM, QD
     Dates: end: 20241122

REACTIONS (2)
  - Dyspnoea [Unknown]
  - Drug interaction [Unknown]
